FAERS Safety Report 20174414 (Version 1)
Quarter: 2021Q4

REPORT INFORMATION
  Report Type: Other
  Country: DE (occurrence: None)
  Receive Date: 20211213
  Receipt Date: 20211213
  Transmission Date: 20220304
  Serious: Yes (Hospitalization)
  Sender: FDA-Public Use
  Company Number: DE-ROCHE-2969801

PATIENT
  Age: 49 Year
  Sex: Male
  Weight: 72 kg

DRUGS (11)
  1. OCRELIZUMAB [Suspect]
     Active Substance: OCRELIZUMAB
     Indication: Primary progressive multiple sclerosis
     Route: 042
     Dates: start: 20180412, end: 20180426
  2. OCRELIZUMAB [Suspect]
     Active Substance: OCRELIZUMAB
     Route: 042
     Dates: start: 20181106
  3. DALFAMPRIDINE [Concomitant]
     Active Substance: DALFAMPRIDINE
     Route: 048
     Dates: start: 202005
  4. BACLOFEN [Concomitant]
     Active Substance: BACLOFEN
     Indication: Muscle spasticity
     Route: 048
     Dates: start: 20160414
  5. BACLOFEN [Concomitant]
     Active Substance: BACLOFEN
     Route: 048
     Dates: start: 20160414
  6. AERIUS [Concomitant]
     Indication: Prophylaxis
     Route: 048
     Dates: start: 20180425, end: 20180427
  7. AERIUS [Concomitant]
     Route: 048
     Dates: start: 20190501, end: 20190503
  8. AERIUS [Concomitant]
     Route: 048
     Dates: start: 20181105, end: 20181107
  9. AERIUS [Concomitant]
     Route: 048
     Dates: start: 20180411, end: 20180413
  10. CHOLECALCIFEROL [Concomitant]
     Active Substance: CHOLECALCIFEROL
     Indication: Vitamin D deficiency
     Route: 048
     Dates: start: 20150915
  11. MAGNESIUM [Concomitant]
     Active Substance: MAGNESIUM
     Indication: Prophylaxis
     Dates: start: 201911

REACTIONS (2)
  - Uhthoff^s phenomenon [Unknown]
  - Pulpitis dental [Unknown]

NARRATIVE: CASE EVENT DATE: 20210827
